FAERS Safety Report 26156284 (Version 1)
Quarter: 2025Q4

REPORT INFORMATION
  Report Type: Spontaneous
  Country: US (occurrence: None)
  Receive Date: 20251215
  Receipt Date: 20251215
  Transmission Date: 20260118
  Serious: No
  Sender: UCB
  Company Number: US-UCBSA-2025055819

PATIENT
  Age: 61 Year

DRUGS (5)
  1. BIMZELX [Suspect]
     Active Substance: BIMEKIZUMAB-BKZX
     Indication: Psoriatic arthropathy
     Dosage: 160 MILLIGRAM, EV 4 WEEKS
  2. EFFEXOR [Concomitant]
     Active Substance: VENLAFAXINE HYDROCHLORIDE
     Indication: Product used for unknown indication
     Dosage: 75 MILLIGRAM, ONCE DAILY (QD)
     Route: 061
  3. Macfell [Concomitant]
     Indication: Migraine
     Dosage: UNK, ONCE DAILY (QD)
     Route: 061
  4. Chlorophine [Concomitant]
     Indication: Product used for unknown indication
     Dosage: 10 MILLIGRAM
     Route: 061
  5. Sulphazalsine [Concomitant]
     Indication: Product used for unknown indication
     Dosage: UNK
     Route: 061

REACTIONS (5)
  - Oral candidiasis [Recovering/Resolving]
  - Mental disorder [Unknown]
  - Fungal infection [Not Recovered/Not Resolved]
  - Dry skin [Not Recovered/Not Resolved]
  - Physical disability [Unknown]
